FAERS Safety Report 11404055 (Version 1)
Quarter: 2015Q3

REPORT INFORMATION
  Report Type: Spontaneous
  Country: US (occurrence: None)
  Receive Date: 20150820
  Receipt Date: 20150820
  Transmission Date: 20151125
  Serious: No
  Sender: FDA-Public Use
  Company Number: None

PATIENT
  Age: 40 Year
  Sex: Female
  Weight: 50.35 kg

DRUGS (6)
  1. KADIAN [Suspect]
     Active Substance: MORPHINE SULFATE
     Indication: PAIN
  2. ALEVE [Concomitant]
     Active Substance: NAPROXEN SODIUM
  3. NUCYNTA [Suspect]
     Active Substance: TAPENTADOL HYDROCHLORIDE
     Indication: BREAKTHROUGH PAIN
  4. DIAZEPAM. [Concomitant]
     Active Substance: DIAZEPAM
  5. LYRICA [Concomitant]
     Active Substance: PREGABALIN
  6. LUNESTA [Concomitant]
     Active Substance: ESZOPICLONE

REACTIONS (3)
  - Drug effect decreased [None]
  - Drug effect incomplete [None]
  - Product substitution issue [None]
